FAERS Safety Report 4907803-5 (Version None)
Quarter: 2006Q1

REPORT INFORMATION
  Report Type: 
  Country: None (occurrence: None)
  Receive Date: 20060210
  Receipt Date: 20051230
  Transmission Date: 20060701
  Serious: Yes (Hospitalization, Other)
  Sender: FDA-Public Use
  Company Number: 2006UW00031

PATIENT
  Age: 60 Year
  Sex: Female
  Weight: 65.8 kg

DRUGS (17)
  1. ARIMIDEX [Suspect]
     Indication: BREAST CANCER
     Route: 048
     Dates: start: 20030201
  2. FOSAMAX [Concomitant]
     Dates: start: 20030201, end: 20050301
  3. CELEBREX [Concomitant]
     Indication: ARTHRITIS
  4. CELEBREX [Concomitant]
     Indication: MYELOPATHY
  5. EFFEXOR [Concomitant]
     Indication: HOT FLUSH
     Route: 048
  6. MEGESTROL [Concomitant]
     Indication: HOT FLUSH
  7. HYDROCHLOROTHIAZIDE [Concomitant]
     Indication: HYPERTENSION
  8. LISINOPRIL [Concomitant]
  9. CARISOPRODOL [Concomitant]
     Indication: PAIN
  10. NORCO [Concomitant]
     Dosage: 10/325
  11. VICODIN [Concomitant]
  12. ASPIRIN [Concomitant]
  13. CALCIUM GLUCONATE [Concomitant]
  14. CENTRUM SILVER [Concomitant]
  15. ASCORBIC ACID [Concomitant]
  16. GLUCOSAMINE AND CHONDROITIN [Concomitant]
     Indication: ARTHRITIS
  17. ZOMETA [Concomitant]

REACTIONS (8)
  - BENIGN COLONIC NEOPLASM [None]
  - CHEST PAIN [None]
  - CORONARY ARTERY DISEASE [None]
  - HOT FLUSH [None]
  - OSTEOPOROSIS [None]
  - PAIN [None]
  - PNEUMONIA [None]
  - SPINAL COMPRESSION FRACTURE [None]
